FAERS Safety Report 6826164-8 (Version None)
Quarter: 2010Q3

REPORT INFORMATION
  Report Type: 
  Country: None (occurrence: None)
  Receive Date: 20100708
  Receipt Date: 20100708
  Transmission Date: 20110219
  Serious: Yes (Hospitalization)
  Sender: FDA-Public Use
  Company Number: None

PATIENT
  Sex: Male
  Weight: 74 kg

DRUGS (1)
  1. TRISENOX [Suspect]
     Dosage: 111.1 MG

REACTIONS (3)
  - CHEST PAIN [None]
  - DYSPNOEA [None]
  - PERICARDIAL EFFUSION [None]
